FAERS Safety Report 23348872 (Version 2)
Quarter: 2024Q1

REPORT INFORMATION
  Report Type: Spontaneous
  Country: IT (occurrence: None)
  Receive Date: 20231229
  Receipt Date: 20240102
  Transmission Date: 20240410
  Serious: Yes (Hospitalization)
  Sender: FDA-Public Use
  Company Number: IT-ROCHE-3480015

PATIENT
  Age: 38 Year
  Sex: Female

DRUGS (1)
  1. OCREVUS [Suspect]
     Active Substance: OCRELIZUMAB
     Indication: Relapsing multiple sclerosis
     Dosage: LAST OCREVUS ADMINISTRATION IN 23 SEPTEMBER THIS WAS THE THIRD DOSE ADMINISTERED NORMALLY
     Route: 042

REACTIONS (4)
  - Noninfective encephalitis [Unknown]
  - Loss of consciousness [Unknown]
  - Heart rate decreased [Unknown]
  - Unresponsive to stimuli [Unknown]

NARRATIVE: CASE EVENT DATE: 20231213
